FAERS Safety Report 24524294 (Version 4)
Quarter: 2024Q4

REPORT INFORMATION
  Report Type: Report from Study
  Country: PT (occurrence: PT)
  Receive Date: 20241018
  Receipt Date: 20241211
  Transmission Date: 20250115
  Serious: Yes (Other)
  Sender: ABBVIE
  Company Number: PT-ABBVIE-5965968

PATIENT
  Age: 87 Year
  Sex: Male

DRUGS (7)
  1. CARBIDOPA\LEVODOPA [Suspect]
     Active Substance: CARBIDOPA\LEVODOPA
     Indication: Parkinson^s disease
     Dosage: 240 MG + 12 MG, LOAD0.7;BAS0.4;HIGH0.43;LOW0.34;EXT0.25
     Route: 058
     Dates: start: 20241011, end: 202412
  2. CARBIDOPA\LEVODOPA [Suspect]
     Active Substance: CARBIDOPA\LEVODOPA
     Dosage: 240 MG + 12 MG, LAST ADMIN DATE: SEP 2024, LOAD0.7;BAS0.44;HIGH0.53;LOW0.33;EXT0.15
     Route: 058
     Dates: start: 20240904
  3. CARBIDOPA\LEVODOPA [Suspect]
     Active Substance: CARBIDOPA\LEVODOPA
     Dosage: 240 MG + 12 MG, : LOAD0.7;BAS0.43;HIGH0.5;LOW0.34;EXT0.25
     Route: 058
     Dates: start: 202409, end: 20241011
  4. CARBIDOPA\LEVODOPA [Suspect]
     Active Substance: CARBIDOPA\LEVODOPA
     Dosage: 240 MG + 12 MG
     Route: 058
     Dates: start: 202412
  5. XADAGO [Concomitant]
     Active Substance: SAFINAMIDE MESYLATE
     Indication: Product used for unknown indication
     Dosage: 1 TABLET  IN THE MORNING, BEFORE DUODOPA
  6. DUTASTERIDE\TAMSULOSIN [Concomitant]
     Active Substance: DUTASTERIDE\TAMSULOSIN
     Indication: Product used for unknown indication
     Dosage: 1 TABLET IN THE MORNING, BEFORE DUODOPA
  7. CLOZAPINE [Concomitant]
     Active Substance: CLOZAPINE
     Indication: Product used for unknown indication
     Dosage: FREQUENCY: AT BEDTIME?START DATE: BEFORE DUODOPA

REACTIONS (9)
  - Urine odour abnormal [Not Recovered/Not Resolved]
  - Refusal of treatment by patient [Recovered/Resolved]
  - Agitation [Recovering/Resolving]
  - Delirium [Recovering/Resolving]
  - Haematuria [Recovered/Resolved]
  - Aggression [Recovering/Resolving]
  - Refusal of treatment by patient [Recovered/Resolved]
  - Insomnia [Recovering/Resolving]
  - Confusional state [Recovering/Resolving]

NARRATIVE: CASE EVENT DATE: 20241010
